FAERS Safety Report 11899329 (Version 2)
Quarter: 2016Q2

REPORT INFORMATION
  Report Type: Spontaneous
  Country: US (occurrence: US)
  Receive Date: 20160108
  Receipt Date: 20160422
  Transmission Date: 20160815
  Serious: No
  Sender: FDA-Public Use
  Company Number: US-SA-2015SA180803

PATIENT
  Age: 50 Year
  Sex: Female

DRUGS (1)
  1. AFREZZA [Suspect]
     Active Substance: INSULIN HUMAN
     Indication: DIABETES MELLITUS
     Dosage: DOSE:SLIDING SCALE BASED ON THE CARB COUNT OF HER FOOD EATEN AND TAKES 4-8 UNITS?FORM: INHALER
     Route: 065

REACTIONS (2)
  - Product use issue [Unknown]
  - Blood glucose increased [Unknown]
